FAERS Safety Report 6194959-2 (Version None)
Quarter: 2009Q2

REPORT INFORMATION
  Report Type: 
  Country: None (occurrence: None)
  Receive Date: 20090515
  Receipt Date: 20090512
  Transmission Date: 20091009
  Serious: Yes (Death, Hospitalization)
  Sender: FDA-Public Use
  Company Number: 2009SP008210

PATIENT
  Age: 62 Year
  Sex: Male
  Weight: 76 kg

DRUGS (15)
  1. PEG-INTRON [Suspect]
     Indication: HEPATITIS C
     Dosage: 120 MCG; QW; SC
     Route: 058
     Dates: start: 20090203, end: 20090422
  2. RIBAVIRIN [Suspect]
     Indication: HEPATITIS C
     Dosage: 800 MG QD PO; 600 MG QD PO; 400 MG QD PO; 200 MG QD PO
     Route: 048
     Dates: start: 20090203, end: 20090223
  3. RIBAVIRIN [Suspect]
     Indication: HEPATITIS C
     Dosage: 800 MG QD PO; 600 MG QD PO; 400 MG QD PO; 200 MG QD PO
     Route: 048
     Dates: start: 20090224, end: 20090309
  4. RIBAVIRIN [Suspect]
     Indication: HEPATITIS C
     Dosage: 800 MG QD PO; 600 MG QD PO; 400 MG QD PO; 200 MG QD PO
     Route: 048
     Dates: start: 20090310, end: 20090419
  5. RIBAVIRIN [Suspect]
     Indication: HEPATITIS C
     Dosage: 800 MG QD PO; 600 MG QD PO; 400 MG QD PO; 200 MG QD PO
     Route: 048
     Dates: start: 20090420, end: 20090425
  6. MP-424 (INVESTIGATIONAL DRUG) [Suspect]
     Indication: HEPATITIS C
     Dosage: 2250 MG; QD; PO
     Route: 048
     Dates: start: 20090203, end: 20090417
  7. LENDORMIN D (BROTIZOLAM) [Suspect]
     Indication: INSOMNIA
     Dosage: 0.25 MG; PRN; PO
     Route: 048
     Dates: start: 20090203, end: 20090425
  8. LEVOFLOXACIN [Suspect]
     Indication: PROSTATITIS
     Dosage: 100 MG TID PO
     Route: 048
     Dates: start: 20090421, end: 20090425
  9. LOXONIN [Concomitant]
  10. SELBEX [Concomitant]
  11. HARNAL D [Concomitant]
  12. CERNILTON (CERNITIN POLLEN EXTRACT) [Concomitant]
  13. SOLITA-T NO 3 [Concomitant]
  14. PANSPORIN [Concomitant]
  15. TIENAM [Concomitant]

REACTIONS (13)
  - AGGRESSION [None]
  - ANOREXIA [None]
  - BLOOD PRESSURE DECREASED [None]
  - BLOOD URINE PRESENT [None]
  - CARDIO-RESPIRATORY ARREST [None]
  - CHEST PAIN [None]
  - CONFUSIONAL STATE [None]
  - DELIRIUM [None]
  - HYPOXIC ENCEPHALOPATHY [None]
  - PROSTATITIS [None]
  - PROTEIN URINE PRESENT [None]
  - PULMONARY EMBOLISM [None]
  - VISUAL IMPAIRMENT [None]
